FAERS Safety Report 5477100-0 (Version None)
Quarter: 2007Q4

REPORT INFORMATION
  Report Type: 
  Country: None (occurrence: None)
  Receive Date: 20071003
  Receipt Date: 20071003
  Transmission Date: 20080405
  Serious: Yes (Other)
  Sender: FDA-Public Use
  Company Number: None

PATIENT
  Sex: Male
  Weight: 23 kg

DRUGS (2)
  1. VYVANSE [Suspect]
     Indication: ATTENTION DEFICIT/HYPERACTIVITY DISORDER
     Dosage: 30MG  QDAY  PO
     Route: 048
     Dates: start: 20070928, end: 20070928
  2. VYVANSE [Suspect]
     Indication: OBSESSIVE-COMPULSIVE DISORDER
     Dosage: 30MG  QDAY  PO
     Route: 048
     Dates: start: 20070928, end: 20070928

REACTIONS (4)
  - ANXIETY [None]
  - CONFUSIONAL STATE [None]
  - DYSKINESIA [None]
  - FEAR [None]
